FAERS Safety Report 8031446-0 (Version None)
Quarter: 2012Q1

REPORT INFORMATION
  Report Type: 
  Country: None (occurrence: None)
  Receive Date: 20120109
  Receipt Date: 20111230
  Transmission Date: 20120608
  Serious: Yes (Hospitalization)
  Sender: FDA-Public Use
  Company Number: US-BAYER-2012-001791

PATIENT
  Age: 47 Year
  Sex: Female
  Weight: 84.1 kg

DRUGS (7)
  1. CLONAZEPAM [Concomitant]
  2. TRAZODONE HCL [Concomitant]
  3. SYNTHROID [Concomitant]
  4. LORAZEPAM [Concomitant]
  5. IMITREX [Concomitant]
  6. YAZ [Suspect]
     Dosage: UNK
     Dates: start: 20080222, end: 20080802
  7. VITAMIN B-12 [Concomitant]

REACTIONS (2)
  - CHEST PAIN [None]
  - ACUTE MYOCARDIAL INFARCTION [None]
